FAERS Safety Report 8185098-X (Version None)
Quarter: 2012Q1

REPORT INFORMATION
  Report Type: 
  Country: None (occurrence: None)
  Receive Date: 20120305
  Receipt Date: 20120223
  Transmission Date: 20120608
  Serious: Yes (Death)
  Sender: FDA-Public Use
  Company Number: US-BAXTER-2012BH005332

PATIENT
  Age: 84 Year
  Sex: Female

DRUGS (2)
  1. DIANEAL [Suspect]
     Indication: PERITONEAL DIALYSIS
     Route: 033
     Dates: start: 20100703, end: 20100922
  2. DIANEAL [Suspect]
     Route: 033
     Dates: start: 20100703, end: 20100922

REACTIONS (3)
  - RENAL FAILURE CHRONIC [None]
  - DEATH [None]
  - DEMENTIA ALZHEIMER'S TYPE [None]
